FAERS Safety Report 4709472-6 (Version None)
Quarter: 2005Q3

REPORT INFORMATION
  Report Type: 
  Country: None (occurrence: None)
  Receive Date: 20050706
  Receipt Date: 20050624
  Transmission Date: 20060218
  Serious: Yes (Life-Threatening, Hospitalization)
  Sender: FDA-Public Use
  Company Number: 215356

PATIENT
  Age: 62 Year
  Sex: Female

DRUGS (15)
  1. HERCEPTIN [Suspect]
     Indication: BREAST CANCER
     Dosage: SEE IMAGE, INTRAVENOUS
     Route: 042
     Dates: start: 20020813, end: 20020813
  2. HERCEPTIN [Suspect]
     Indication: BREAST CANCER
     Dosage: SEE IMAGE, INTRAVENOUS
     Route: 042
     Dates: end: 20030813
  3. HERCEPTIN [Suspect]
     Indication: BREAST CANCER
     Dosage: SEE IMAGE, INTRAVENOUS
     Route: 042
     Dates: start: 20020819
  4. HERCEPTIN [Suspect]
  5. TAXOTERE [Suspect]
     Indication: BREAST CANCER
     Dosage: 195 MG, Q3W, INTRAVENOUS
     Route: 042
     Dates: start: 20020814, end: 20021016
  6. DOXORUBICIN HYDROCHLORIDE [Suspect]
     Indication: BREAST CANCER
     Dosage: 115 MG, INTRAVENOUS
     Route: 042
     Dates: start: 20020506, end: 20020715
  7. CYTOXAN [Suspect]
     Indication: BREAST CANCER
     Dosage: 1150 MG, INTRAVENOUS
     Route: 042
     Dates: start: 20020506, end: 20020715
  8. DIAPREL (GLICLAZIDE) [Concomitant]
  9. ATENOLOL [Concomitant]
  10. RAMIPRIL [Concomitant]
  11. ZANTAC [Concomitant]
  12. NITRODERM [Concomitant]
  13. BETALOC (METOPROLOL TARTRATE) [Concomitant]
  14. XANAX [Concomitant]
  15. ATORVASTATIN CALCIUM [Concomitant]

REACTIONS (14)
  - ACUTE MYOCARDIAL INFARCTION [None]
  - ANGINA PECTORIS [None]
  - BACK PAIN [None]
  - BRADYCARDIA [None]
  - CORONARY ARTERY ATHEROSCLEROSIS [None]
  - DYSPNOEA [None]
  - FATIGUE [None]
  - HYPERLIPIDAEMIA [None]
  - HYPERTENSION [None]
  - HYPOTENSION [None]
  - MITRAL VALVE INCOMPETENCE [None]
  - NOCTURIA [None]
  - PAIN IN EXTREMITY [None]
  - TRICUSPID VALVE INCOMPETENCE [None]
